FAERS Safety Report 20186388 (Version 1)
Quarter: 2021Q4

REPORT INFORMATION
  Report Type: Spontaneous
  Country: US (occurrence: US)
  Receive Date: 20211215
  Receipt Date: 20211215
  Transmission Date: 20220303
  Serious: No
  Sender: FDA-Public Use
  Company Number: US-RECKITT BENCKISER HEALTHCARE INT LIMITED-RB-87389-2021

PATIENT
  Age: 76 Year
  Sex: Male

DRUGS (1)
  1. DELSYM NIGHT TIME COUGH AND COLD [Suspect]
     Active Substance: DIPHENHYDRAMINE HYDROCHLORIDE\PHENYLEPHRINE HYDROCHLORIDE
     Indication: Chronic respiratory disease
     Dosage: UNK, TOOK PRODUCT FOR TWO WEEKS
     Route: 065
     Dates: start: 20210319

REACTIONS (4)
  - Oropharyngeal pain [Unknown]
  - Cough [Unknown]
  - Product use in unapproved indication [Unknown]
  - Incorrect product administration duration [Unknown]
